FAERS Safety Report 23908016 (Version 2)
Quarter: 2024Q2

REPORT INFORMATION
  Report Type: Spontaneous
  Country: PL (occurrence: PL)
  Receive Date: 20240528
  Receipt Date: 20240613
  Transmission Date: 20240716
  Serious: Yes (Other)
  Sender: FDA-Public Use
  Company Number: PL-TEVA-VS-3198317

PATIENT
  Age: 70 Year
  Sex: Female
  Weight: 47 kg

DRUGS (1)
  1. HYDROXYUREA [Suspect]
     Active Substance: HYDROXYUREA
     Indication: Myelofibrosis
     Route: 048
     Dates: start: 1995

REACTIONS (8)
  - Choking [Not Recovered/Not Resolved]
  - Abdominal discomfort [Not Recovered/Not Resolved]
  - Tension [Unknown]
  - Aphthous ulcer [Unknown]
  - Product solubility abnormal [Unknown]
  - Stress [Unknown]
  - Incorrect dose administered [Unknown]
  - Product use complaint [Unknown]
